FAERS Safety Report 4459794-1 (Version None)
Quarter: 2004Q3

REPORT INFORMATION
  Report Type: 
  Country: None (occurrence: None)
  Receive Date: 20040928
  Receipt Date: 20040826
  Transmission Date: 20050211
  Serious: No
  Sender: FDA-Public Use
  Company Number: US-BRISTOL-MYERS SQUIBB COMPANY-12684361

PATIENT
  Age: 45 Year
  Sex: Female

DRUGS (1)
  1. KENALOG-40 [Suspect]
     Indication: NASAL OEDEMA
     Dosage: ADMINISTERED ONE WEEK POST-OPERATIVELY
     Route: 058
     Dates: start: 20040101

REACTIONS (1)
  - INJECTION SITE ATROPHY [None]
